FAERS Safety Report 6572612-0 (Version None)
Quarter: 2010Q1

REPORT INFORMATION
  Report Type: 
  Country: None (occurrence: None)
  Receive Date: 20100205
  Receipt Date: 20100201
  Transmission Date: 20100710
  Serious: Yes (Other)
  Sender: FDA-Public Use
  Company Number: CHPA2010JP01337

PATIENT
  Age: 75 Year
  Sex: Female

DRUGS (1)
  1. PURSENNID (NCH) [Suspect]
     Indication: CONSTIPATION
     Dosage: UNK, UNK
     Route: 048

REACTIONS (1)
  - PULMONARY HYPERTENSION [None]
